FAERS Safety Report 6327900-X (Version None)
Quarter: 2009Q3

REPORT INFORMATION
  Report Type: 
  Country: None (occurrence: None)
  Receive Date: 20090825
  Receipt Date: 20080728
  Transmission Date: 20100115
  Serious: No
  Sender: FDA-Public Use
  Company Number: US-ABBOTT-08P-163-0465890-00

PATIENT
  Sex: Female

DRUGS (2)
  1. SYNTHROID [Suspect]
     Indication: DRUG USE FOR UNKNOWN INDICATION
     Route: 048
  2. MULTI-VITAMINS [Concomitant]
     Indication: DRUG USE FOR UNKNOWN INDICATION
     Dosage: NOT REPORTED

REACTIONS (7)
  - BONE DENSITY DECREASED [None]
  - BONE DISORDER [None]
  - FOOD INTOLERANCE [None]
  - GASTRIC DISORDER [None]
  - MUSCLE SPASMS [None]
  - SKIN ATROPHY [None]
  - SKIN DISCOLOURATION [None]
